FAERS Safety Report 6805261-7 (Version None)
Quarter: 2010Q2

REPORT INFORMATION
  Report Type: 
  Country: None (occurrence: None)
  Receive Date: 20100628
  Receipt Date: 20071001
  Transmission Date: 20101027
  Serious: No
  Sender: FDA-Public Use
  Company Number: US-PFIZER INC-2007082337

PATIENT
  Sex: Male
  Weight: 87.1 kg

DRUGS (10)
  1. SUTENT [Suspect]
     Indication: RENAL CANCER
     Dosage: 50 MG, 1X/DAY
     Route: 048
     Dates: start: 20070817
  2. AVANDIA [Concomitant]
     Indication: DIABETES MELLITUS
  3. CAPTOPRIL [Concomitant]
  4. VERAPAMIL [Concomitant]
  5. LEVOTHYROXINE SODIUM [Concomitant]
  6. FUROSEMIDE [Concomitant]
  7. OXYCODONE HCL [Concomitant]
     Indication: PAIN
  8. VYTORIN [Concomitant]
  9. AMOXICILLIN [Concomitant]
  10. NEXIUM [Concomitant]

REACTIONS (1)
  - DIARRHOEA [None]
